FAERS Safety Report 10221094 (Version 2)
Quarter: 2014Q2

REPORT INFORMATION
  Report Type: Spontaneous
  Country: US (occurrence: US)
  Receive Date: 20140606
  Receipt Date: 20140630
  Transmission Date: 20141212
  Serious: Yes (Other)
  Sender: FDA-Public Use
  Company Number: US-PFIZER INC-2014155879

PATIENT
  Age: 70 Year
  Sex: Male
  Weight: 90.7 kg

DRUGS (4)
  1. GABAPENTIN [Suspect]
     Indication: NEUROPATHY PERIPHERAL
     Dosage: 75 MG, 2X/DAY
  2. LISINOPRIL [Concomitant]
     Indication: HYPERTENSION
     Dosage: 40 MG, 2X/DAY
  3. ATORVASTATIN [Concomitant]
     Indication: BLOOD CHOLESTEROL INCREASED
     Dosage: 40 MG, DAILY
  4. FLUOXETINE [Concomitant]
     Dosage: 10 MG, DAILY

REACTIONS (4)
  - Suicidal ideation [Unknown]
  - Suicidal behaviour [Unknown]
  - Hostility [Unknown]
  - Pain [Unknown]
